FAERS Safety Report 25399313 (Version 1)
Quarter: 2025Q2

REPORT INFORMATION
  Report Type: Report from Study
  Country: DE (occurrence: DE)
  Receive Date: 20250605
  Receipt Date: 20250605
  Transmission Date: 20250716
  Serious: Yes (Other)
  Sender: RADIUS PHARM
  Company Number: DE-THERAMEX-2025001363

PATIENT
  Age: 79 Year
  Sex: Female

DRUGS (2)
  1. ABALOPARATIDE [Suspect]
     Active Substance: ABALOPARATIDE
     Indication: Osteoporosis
     Dosage: 80 MICROGRAM, QD (ONE INJECTION PER DAY)
     Route: 058
     Dates: start: 20250428, end: 20250501
  2. ABALOPARATIDE [Suspect]
     Active Substance: ABALOPARATIDE
     Dosage: 80 MICROGRAM, QD (ONE INJECTION PER DAY)
     Route: 058
     Dates: start: 20250502, end: 20250522

REACTIONS (6)
  - Hypertension [Not Recovered/Not Resolved]
  - Hyperhidrosis [Not Recovered/Not Resolved]
  - Insomnia [Not Recovered/Not Resolved]
  - Back pain [Not Recovered/Not Resolved]
  - Dizziness [Not Recovered/Not Resolved]
  - Headache [Not Recovered/Not Resolved]

NARRATIVE: CASE EVENT DATE: 20250428
